FAERS Safety Report 9022097 (Version 1)
Quarter: 2013Q1

REPORT INFORMATION
  Report Type: Spontaneous
  Country: IT (occurrence: IT)
  Receive Date: 20130118
  Receipt Date: 20130118
  Transmission Date: 20140127
  Serious: Yes (Hospitalization)
  Sender: FDA-Public Use
  Company Number: IT-GLAXOSMITHKLINE-B0858584A

PATIENT
  Age: 73 None
  Sex: Male

DRUGS (10)
  1. LEVOXACIN [Suspect]
     Indication: PNEUMONIA
     Dosage: 500MG PER DAY
     Route: 048
     Dates: start: 20121226, end: 20130101
  2. CARVEDILOL [Suspect]
     Indication: CARDIAC DISORDER
     Dosage: 18MG PER DAY
     Route: 048
     Dates: start: 20121226, end: 20130108
  3. METFORMINA [Suspect]
     Indication: TYPE 2 DIABETES MELLITUS
     Dosage: 100MG PER DAY
     Route: 048
     Dates: start: 20121226, end: 20121229
  4. LANSOPRAZOLE [Suspect]
     Dosage: 30MG PER DAY
     Route: 048
     Dates: start: 20121226, end: 20130108
  5. CLENIL [Suspect]
     Indication: PNEUMONIA
     Dosage: 100MCG PER DAY
     Route: 045
     Dates: start: 20121226, end: 20130101
  6. BRONCOVALEAS [Suspect]
     Indication: PNEUMONIA
     Route: 065
     Dates: start: 20130101, end: 20130107
  7. CARDIOASPIRIN [Suspect]
     Indication: COAGULOPATHY
     Dosage: 100MG PER DAY
     Route: 048
     Dates: start: 20121226, end: 20121229
  8. LASIX [Suspect]
     Indication: PRODUCT USED FOR UNKNOWN INDICATION
     Dosage: 25MG PER DAY
     Route: 048
     Dates: start: 20121226, end: 20130108
  9. TRIATEC [Suspect]
     Indication: HYPERTENSION
     Dosage: 2MG PER DAY
     Route: 048
     Dates: start: 20121226, end: 20130108
  10. NITRODUR [Suspect]
     Dosage: 10MG PER DAY
     Route: 062
     Dates: start: 20121226, end: 20130108

REACTIONS (1)
  - Tendonitis [Unknown]
